FAERS Safety Report 7179428-5 (Version None)
Quarter: 2010Q4

REPORT INFORMATION
  Report Type: 
  Country: None (occurrence: None)
  Receive Date: 20101217
  Receipt Date: 20101217
  Transmission Date: 20110411
  Serious: Yes (Hospitalization)
  Sender: FDA-Public Use
  Company Number: None

PATIENT
  Sex: Female
  Weight: 107 kg

DRUGS (8)
  1. IFOSFAMIDE [Suspect]
     Dosage: 9.6 MG
  2. TAXOL [Suspect]
     Dosage: 270 MG
  3. NEULASTA [Suspect]
     Dosage: 6 MG
  4. HEPARIN [Concomitant]
  5. MESNA [Concomitant]
  6. CEFEPIME [Concomitant]
  7. COREG [Concomitant]
  8. LEVOPHED [Concomitant]

REACTIONS (6)
  - ASTHENIA [None]
  - DEHYDRATION [None]
  - HYPOTENSION [None]
  - MYOCARDIAL INFARCTION [None]
  - RENAL FAILURE ACUTE [None]
  - VAGINAL HAEMORRHAGE [None]
